FAERS Safety Report 26059237 (Version 1)
Quarter: 2025Q4

REPORT INFORMATION
  Report Type: Spontaneous
  Country: US (occurrence: US)
  Receive Date: 20251118
  Receipt Date: 20251118
  Transmission Date: 20260118
  Serious: No
  Sender: NANTKWEST
  Company Number: US-NantWorks-2025-US-NANT-00057

PATIENT
  Age: 78 Year
  Sex: Male

DRUGS (1)
  1. ANKTIVA [Suspect]
     Active Substance: NOGAPENDEKIN ALFA INBAKICEPT-PMLN
     Indication: Product used for unknown indication
     Dosage: DATE OF LAST DOSE PRIOR TO ONSET OF EVENT (SECOND DOSE RECEIVED, DOSE NOT REPORTED)
     Route: 043
     Dates: start: 20250818

REACTIONS (1)
  - Penile burning sensation [Not Recovered/Not Resolved]

NARRATIVE: CASE EVENT DATE: 20250818
